FAERS Safety Report 7806492 (Version 5)
Quarter: 2015Q1

REPORT INFORMATION
  Report Type: Spontaneous
  Country: US (occurrence: US)
  Receive Date: 20110209
  Receipt Date: 20150331
  Transmission Date: 20150721
  Serious: Yes (Hospitalization, Disabling, Other)
  Sender: FDA-Public Use
  Company Number: US-ASTRAZENECA-2011SE05219

PATIENT
  Age: 83 Year
  Sex: Female

DRUGS (27)
  1. CITRUCEL [Concomitant]
     Active Substance: METHYLCELLULOSE (4000 MPA.S)
  2. NEXIUM [Suspect]
     Active Substance: ESOMEPRAZOLE MAGNESIUM
     Route: 048
  3. LYRICA [Concomitant]
     Active Substance: PREGABALIN
  4. ZOLOFT [Concomitant]
     Active Substance: SERTRALINE HYDROCHLORIDE
  5. ASA [Concomitant]
     Active Substance: ASPIRIN
  6. VITAMIN C [Concomitant]
     Active Substance: ASCORBIC ACID
  7. PREDNISONE. [Concomitant]
     Active Substance: PREDNISONE
  8. ALBUTEROL. [Concomitant]
     Active Substance: ALBUTEROL
  9. VENTOLIN HFA [Concomitant]
     Active Substance: ALBUTEROL SULFATE
  10. FERROUS SULFATE [Concomitant]
     Active Substance: FERROUS SULFATE\FERROUS SULFATE, DRIED
  11. MAGNESIUM [Concomitant]
     Active Substance: MAGNESIUM
  12. VITAMIN E [Concomitant]
     Active Substance: .ALPHA.-TOCOPHEROL
  13. LANOXIN [Concomitant]
     Active Substance: DIGOXIN
  14. LIPITOR [Concomitant]
     Active Substance: ATORVASTATIN CALCIUM
  15. ADVAIR DISCUS [Concomitant]
  16. FOSAMAX [Concomitant]
     Active Substance: ALENDRONATE SODIUM
  17. HYDROCHLOROTHIAZIDE. [Concomitant]
     Active Substance: HYDROCHLOROTHIAZIDE
  18. ATROVENT [Concomitant]
     Active Substance: IPRATROPIUM BROMIDE
  19. CALCIUM CITRATE [Concomitant]
     Active Substance: CALCIUM CITRATE
  20. LUETEIN AND ZEAXANTHIN [Concomitant]
  21. STOOL SOFTENER [Concomitant]
     Active Substance: DOCUSATE CALCIUM
  22. XANAX [Concomitant]
     Active Substance: ALPRAZOLAM
  23. TOPROL XL [Suspect]
     Active Substance: METOPROLOL SUCCINATE
     Route: 048
  24. WARFARIN [Concomitant]
     Active Substance: WARFARIN
  25. SYMBICORT [Suspect]
     Active Substance: BUDESONIDE\FORMOTEROL FUMARATE DIHYDRATE
     Dosage: UNKNOWN
     Route: 055
  26. CELEBREX [Concomitant]
     Active Substance: CELECOXIB
  27. VITAMIN D3 [Concomitant]
     Active Substance: CHOLECALCIFEROL

REACTIONS (5)
  - Blindness [Unknown]
  - Macular degeneration [Unknown]
  - Drug hypersensitivity [Unknown]
  - Malaise [Unknown]
  - Neoplasm malignant [Unknown]

NARRATIVE: CASE EVENT DATE: 2009
